FAERS Safety Report 19497867 (Version 1)
Quarter: 2021Q3

REPORT INFORMATION
  Report Type: Other
  Country: CN (occurrence: CN)
  Receive Date: 20210706
  Receipt Date: 20210706
  Transmission Date: 20211014
  Serious: Yes (Death, Hospitalization)
  Sender: FDA-Public Use
  Company Number: CN-ROCHE-1811574

PATIENT
  Age: 54 Year
  Sex: Female
  Weight: 52 kg

DRUGS (2)
  1. AVASTIN [Suspect]
     Active Substance: BEVACIZUMAB
     Indication: LUNG ADENOCARCINOMA
     Route: 041
     Dates: start: 20160224, end: 20200911
  2. AVASTIN [Suspect]
     Active Substance: BEVACIZUMAB
     Route: 041
     Dates: start: 20201103, end: 20210219

REACTIONS (14)
  - Nasopharyngitis [Unknown]
  - Ligament sprain [Unknown]
  - Injury [Unknown]
  - Pelvic bone injury [Unknown]
  - Pyrexia [Unknown]
  - Fall [Unknown]
  - Discomfort [Unknown]
  - Laryngopharyngitis [Unknown]
  - Protein urine present [Not Recovered/Not Resolved]
  - Pneumonia [Fatal]
  - Palpitations [Unknown]
  - Feeding disorder [Unknown]
  - Movement disorder [Unknown]
  - Pneumonitis [Unknown]

NARRATIVE: CASE EVENT DATE: 20191224
